FAERS Safety Report 4484862-8 (Version None)
Quarter: 2004Q3

REPORT INFORMATION
  Report Type: 
  Country: None (occurrence: None)
  Receive Date: 20040921
  Receipt Date: 20030915
  Transmission Date: 20050211
  Serious: Yes (Other)
  Sender: FDA-Public Use
  Company Number: 163-20785-03090448 (0)

PATIENT
  Age: 59 Year
  Sex: Female

DRUGS (7)
  1. THALOMID [Suspect]
     Indication: DERMATOMYOSITIS
     Dosage: 50 MG, TWICE A DAY, ORAL
     Route: 048
     Dates: start: 20021101, end: 20030901
  2. PREMARIN [Concomitant]
  3. FOLIC ACID [Concomitant]
  4. METHOTREXATE [Concomitant]
  5. PAXIL [Concomitant]
  6. VITAMIN B6 [Concomitant]
  7. SYNTHROID [Concomitant]

REACTIONS (1)
  - DEAFNESS [None]
